FAERS Safety Report 7387363-2 (Version None)
Quarter: 2011Q1

REPORT INFORMATION
  Report Type: 
  Country: None (occurrence: None)
  Receive Date: 20110331
  Receipt Date: 20110317
  Transmission Date: 20110831
  Serious: Yes (Hospitalization)
  Sender: FDA-Public Use
  Company Number: PHHO2011TN03633

PATIENT
  Sex: Male

DRUGS (3)
  1. ANTIBIOTICS [Concomitant]
  2. CHEMOTHERAPEUTICS NOS [Concomitant]
  3. EVEROLIMUS [Suspect]
     Indication: METASTATIC RENAL CELL CARCINOMA
     Dosage: 10 MG, QD
     Route: 048
     Dates: start: 20100809, end: 20110223

REACTIONS (8)
  - INTERSTITIAL LUNG DISEASE [None]
  - TACHYPNOEA [None]
  - DYSPNOEA [None]
  - ENTEROBACTER TEST POSITIVE [None]
  - BRONCHOPNEUMONIA [None]
  - BRONCHITIS [None]
  - PYREXIA [None]
  - CONCOMITANT DISEASE PROGRESSION [None]
